FAERS Safety Report 7290401-9 (Version None)
Quarter: 2011Q1

REPORT INFORMATION
  Report Type: 
  Country: None (occurrence: None)
  Receive Date: 20110214
  Receipt Date: 20110204
  Transmission Date: 20110831
  Serious: No
  Sender: FDA-Public Use
  Company Number: CH-ASTRAZENECA-2010SE59538

PATIENT
  Sex: Female

DRUGS (8)
  1. SEROQUEL [Suspect]
     Dosage: 175 MG DAILY, 25 + 0 + 150
     Route: 048
     Dates: start: 20100816, end: 20101213
  2. BECOTAL FORTE [Concomitant]
     Indication: VITAMIN B12 DEFICIENCY
     Route: 048
     Dates: start: 20101115
  3. SEROQUEL [Suspect]
     Indication: SLEEP DISORDER
     Dosage: 300 MG DAILY, 50 + 50 + 200
     Route: 048
     Dates: start: 20100716, end: 20100816
  4. SEROQUEL [Suspect]
     Indication: RESTLESSNESS
     Dosage: 300 MG DAILY, 50 + 50 + 200
     Route: 048
     Dates: start: 20100716, end: 20100816
  5. SEROQUEL [Suspect]
     Dosage: 175 MG DAILY, 25 + 0 + 150
     Route: 048
     Dates: start: 20100816, end: 20101213
  6. CITALOPRAM HYDROBROMIDE [Concomitant]
     Indication: DEPRESSION
     Route: 048
     Dates: start: 20101125
  7. FERRUM HAUSMANN [Concomitant]
     Indication: IRON DEFICIENCY
     Route: 048
     Dates: start: 20101117
  8. FOLVITE [Concomitant]
     Indication: FOLATE DEFICIENCY
     Route: 048
     Dates: start: 20101117

REACTIONS (2)
  - NEUTROPENIA [None]
  - LEUKOPENIA [None]
